FAERS Safety Report 20628436 (Version 2)
Quarter: 2022Q2

REPORT INFORMATION
  Report Type: Spontaneous
  Country: US (occurrence: US)
  Receive Date: 20220323
  Receipt Date: 20220613
  Transmission Date: 20220721
  Serious: No
  Sender: FDA-Public Use
  Company Number: US-NOVARTISTESTPH-NVSC2022US065363

PATIENT

DRUGS (1)
  1. KESIMPTA [Suspect]
     Active Substance: OFATUMUMAB
     Indication: Relapsing multiple sclerosis
     Dosage: UNK UNK, QW
     Route: 058

REACTIONS (6)
  - Influenza like illness [Unknown]
  - Pain [Unknown]
  - Chills [Unknown]
  - Oropharyngeal pain [Unknown]
  - Pain in extremity [Unknown]
  - Fatigue [Unknown]
